FAERS Safety Report 17688938 (Version 2)
Quarter: 2020Q2

REPORT INFORMATION
  Report Type: Spontaneous
  Country: US (occurrence: US)
  Receive Date: 20200421
  Receipt Date: 20200508
  Transmission Date: 20200714
  Serious: Yes (Other)
  Sender: FDA-Public Use
  Company Number: US-SHIRE-US202007925

PATIENT
  Sex: Female

DRUGS (1)
  1. TAKHZYRO [Suspect]
     Active Substance: LANADELUMAB-FLYO
     Indication: HEREDITARY ANGIOEDEMA
     Dosage: 300 MILLIGRAM, 1X/2WKS
     Route: 058
     Dates: start: 20190702

REACTIONS (4)
  - Hereditary angioedema [Recovered/Resolved]
  - Product supply issue [Unknown]
  - Drug monitoring procedure incorrectly performed [Recovering/Resolving]
  - Product dose omission [Recovered/Resolved]
